FAERS Safety Report 16589603 (Version 1)
Quarter: 2019Q3

REPORT INFORMATION
  Report Type: Spontaneous
  Country: US (occurrence: US)
  Receive Date: 20190717
  Receipt Date: 20190717
  Transmission Date: 20191004
  Serious: Yes (Death)
  Sender: FDA-Public Use
  Company Number: None

PATIENT
  Age: 60 Year
  Sex: Female

DRUGS (4)
  1. SANDIMMUNE [Suspect]
     Active Substance: CYCLOSPORINE
     Indication: PANCREAS TRANSPLANT
     Dosage: ?          OTHER FREQUENCY:DAILY AS DIRECTED;?
     Route: 048
     Dates: start: 20160325
  2. AZATHIOPRINE. [Suspect]
     Active Substance: AZATHIOPRINE
     Indication: PANCREAS TRANSPLANT
     Route: 048
     Dates: start: 20160325
  3. FLUCONAZOLE, MIDODRINE, LORAZEPAM, PREDNISONE [Concomitant]
  4. FLUDROCORT, METOPROL, OMEPRAZOLE [Concomitant]

REACTIONS (1)
  - Death [None]

NARRATIVE: CASE EVENT DATE: 20190712
